FAERS Safety Report 5270599-4 (Version None)
Quarter: 2007Q1

REPORT INFORMATION
  Report Type: 
  Country: None (occurrence: None)
  Receive Date: 20070315
  Receipt Date: 20070302
  Transmission Date: 20070707
  Serious: Yes (Other)
  Sender: FDA-Public Use
  Company Number: 237580

PATIENT
  Age: 57 Year
  Sex: Female

DRUGS (7)
  1. BEVACIZUMAB [Suspect]
     Indication: BREAST CANCER
     Dosage: 718 MG, Q2W, INTRAVENOUS
     Route: 042
     Dates: start: 20061025
  2. ADRIAMYCIN PFS [Suspect]
     Indication: BREAST CANCER
     Dosage: 104 MG, Q2W
     Dates: start: 20061025
  3. CYTOXAN [Suspect]
     Indication: BREAST CANCER
     Dosage: 1040 MG, Q2W, INTRAVENOUS
     Route: 042
     Dates: start: 20061025
  4. PACLITAXEL [Suspect]
     Indication: BREAST CANCER
     Dosage: 450 MG
     Dates: start: 20061220
  5. NEULASTA [Suspect]
     Indication: BREAST CANCER
     Dosage: 6 MG
     Dates: start: 20061025
  6. CETIRIZINE HCL [Concomitant]
  7. MONTELUKAST SODIUM [Concomitant]

REACTIONS (4)
  - CONDITION AGGRAVATED [None]
  - NEUTROPENIA [None]
  - SINUSITIS [None]
  - SINUSITIS FUNGAL [None]
